FAERS Safety Report 6416736-7 (Version None)
Quarter: 2009Q4

REPORT INFORMATION
  Report Type: 
  Country: None (occurrence: None)
  Receive Date: 20091022
  Receipt Date: 20091012
  Transmission Date: 20100525
  Serious: Yes (Death)
  Sender: FDA-Public Use
  Company Number: ADE09045-L

PATIENT

DRUGS (3)
  1. CYCLOSPORINE INJECTION [Suspect]
     Indication: NERVOUS SYSTEM DISORDER
     Dosage: IV; DOSE USED UNKNOWN
  2. POSSIBLE VASOACTIVE DRUGS [Concomitant]
  3. MANNITOL [Concomitant]

REACTIONS (1)
  - DEATH [None]
